FAERS Safety Report 9113415 (Version 1)
Quarter: 2013Q1

REPORT INFORMATION
  Report Type: Spontaneous
  Country: US (occurrence: US)
  Receive Date: 20130129
  Receipt Date: 20130129
  Transmission Date: 20140127
  Serious: No
  Sender: FDA-Public Use
  Company Number: US-ABBOTT-12P-163-0931863-00

PATIENT
  Sex: Female

DRUGS (3)
  1. HUMIRA 40 MG/0.8 ML PEN [Suspect]
     Indication: PSORIATIC ARTHROPATHY
  2. HUMIRA 40 MG/0.8 ML PEN [Suspect]
     Dosage: HUMIRA PRE-FILLED SYRINGE
  3. HUMIRA 40 MG/ 0.8 ML PRE-FILLED SYRINGE [Suspect]
     Indication: PSORIATIC ARTHROPATHY

REACTIONS (3)
  - Injection site granuloma [Unknown]
  - Injection site reaction [Unknown]
  - Injection site pain [Unknown]
